FAERS Safety Report 14829070 (Version 1)
Quarter: 2018Q2

REPORT INFORMATION
  Report Type: Spontaneous
  Country: US (occurrence: US)
  Receive Date: 20180430
  Receipt Date: 20180430
  Transmission Date: 20180711
  Serious: Yes (Other)
  Sender: FDA-Public Use
  Company Number: US-ALLERGAN-1823430US

PATIENT
  Age: 45 Year
  Sex: Female

DRUGS (2)
  1. BISACODYL. [Suspect]
     Active Substance: BISACODYL
     Indication: IRRITABLE BOWEL SYNDROME
     Dosage: UNK
     Route: 065
  2. LINACLOTIDE UNK [Suspect]
     Active Substance: LINACLOTIDE
     Indication: IRRITABLE BOWEL SYNDROME
     Dosage: UNK
     Route: 065

REACTIONS (4)
  - Rhabdomyolysis [Recovering/Resolving]
  - Hyponatraemia [Unknown]
  - Hypokalaemia [Recovering/Resolving]
  - Diarrhoea [Recovering/Resolving]
